FAERS Safety Report 23460177 (Version 1)
Quarter: 2024Q1

REPORT INFORMATION
  Report Type: Report from Study
  Country: PL (occurrence: PL)
  Receive Date: 20240131
  Receipt Date: 20240131
  Transmission Date: 20240409
  Serious: Yes (Other)
  Sender: FDA-Public Use
  Company Number: PL-ADIENNEP-2024AD000030

PATIENT

DRUGS (5)
  1. ACYCLOVIR [Suspect]
     Active Substance: ACYCLOVIR
     Indication: Antibiotic prophylaxis
     Dosage: 800 MILLIGRAM, TWO TIMES A DAY  (800 MG TWICE DAILY)
     Route: 065
  2. MELPHALAN [Suspect]
     Active Substance: MELPHALAN
     Indication: Autologous haematopoietic stem cell transplant
     Dosage: 140 MILLIGRAM/SQ. METER (140 MG/M2 AT DAY -1)
     Route: 065
  3. CYTARABINE [Suspect]
     Active Substance: CYTARABINE
     Indication: Autologous haematopoietic stem cell transplant
     Dosage: 200 MILLIGRAM/SQ. METER, TWO TIMES A DAY (200 MG/M2 IV TWICE A DAY IV AT DAY -5 TO -2)
     Route: 042
  4. CIPROFLOXACIN [Suspect]
     Active Substance: CIPROFLOXACIN
     Indication: Antibiotic prophylaxis
     Dosage: 500 MILLIGRAM, TWO TIMES A DAY (500 MG TWICE A DAY)
     Route: 065
  5. ETOPOSIDE [Suspect]
     Active Substance: ETOPOSIDE
     Indication: Autologous haematopoietic stem cell transplant
     Dosage: 200 MILLIGRAM/SQ. METER ( (200 MG/M2 IV AT DAY -5 TO -2))
     Route: 042

REACTIONS (1)
  - Bacteraemia [Unknown]
